FAERS Safety Report 6264641-1 (Version None)
Quarter: 2009Q3

REPORT INFORMATION
  Report Type: 
  Country: None (occurrence: None)
  Receive Date: 20090710
  Receipt Date: 20090618
  Transmission Date: 20100115
  Serious: Yes (Hospitalization)
  Sender: FDA-Public Use
  Company Number: PHHO2009DE07564

PATIENT

DRUGS (2)
  1. CGS 20267 T30748+TAB [Suspect]
     Indication: BREAST CANCER
     Route: 048
  2. ZOLEDRONIC ACID [Suspect]
     Route: 042

REACTIONS (1)
  - OSTEONECROSIS [None]
